FAERS Safety Report 5018172-7 (Version None)
Quarter: 2006Q2

REPORT INFORMATION
  Report Type: 
  Country: None (occurrence: None)
  Receive Date: 20060530
  Receipt Date: 20050310
  Transmission Date: 20061013
  Serious: Yes (Hospitalization)
  Sender: FDA-Public Use
  Company Number: 2004094456

PATIENT
  Age: 37 Year
  Sex: Female
  Weight: 62 kg

DRUGS (5)
  1. LYRICA [Suspect]
     Indication: EPILEPSY
     Dosage: 300 MG (1 IN 1 D), ORAL
     Route: 048
     Dates: start: 20041006, end: 20041030
  2. LAMOTRIGINE [Concomitant]
  3. LEVETIRACETAM [Concomitant]
  4. CLOBAZAM (CLOBAZAM) [Concomitant]
  5. COLECALCIFEROL (COLECALCIFEROL) [Concomitant]

REACTIONS (1)
  - DRUG ERUPTION [None]
